FAERS Safety Report 5573458-2 (Version None)
Quarter: 2007Q4

REPORT INFORMATION
  Report Type: 
  Country: None (occurrence: None)
  Receive Date: 20071226
  Receipt Date: 20071217
  Transmission Date: 20080405
  Serious: Yes (Hospitalization, Other)
  Sender: FDA-Public Use
  Company Number: GB-JNJFOC-20071204843

PATIENT
  Sex: Female
  Weight: 68 kg

DRUGS (16)
  1. REMICADE [Suspect]
     Indication: RHEUMATOID ARTHRITIS
     Route: 042
  2. CALCICHEW [Concomitant]
  3. HYDROXYZINE [Concomitant]
  4. PREDNISOLONE [Concomitant]
  5. ASPIRIN [Concomitant]
  6. ATENOLOL [Concomitant]
  7. CELECOXIB [Concomitant]
  8. DF 118 [Concomitant]
  9. EURAX [Concomitant]
  10. FENTANYL [Concomitant]
  11. IMDUR [Concomitant]
  12. LANSOPRAZOLE [Concomitant]
  13. NEFOPAM [Concomitant]
  14. RISEDRONATE SODIUM [Concomitant]
  15. TERBUTALINE SULFATE [Concomitant]
  16. CITALOPRAM HYDROBROMIDE [Concomitant]

REACTIONS (1)
  - WOUND SECRETION [None]
